FAERS Safety Report 4566563-0 (Version None)
Quarter: 2005Q1

REPORT INFORMATION
  Report Type: 
  Country: None (occurrence: None)
  Receive Date: 20050126
  Receipt Date: 20050120
  Transmission Date: 20050727
  Serious: Yes (Death)
  Sender: FDA-Public Use
  Company Number: 163-20785-04120403

PATIENT
  Age: 73 Year
  Sex: Female

DRUGS (2)
  1. THALOMID [Suspect]
     Indication: MYELODYSPLASTIC SYNDROME
     Dosage: 50 MG DAILY, ORAL
     Route: 048
     Dates: start: 20040930, end: 20041201
  2. THALOMID [Suspect]
     Indication: MYELOPROLIFERATIVE DISORDER
     Dosage: 50 MG DAILY, ORAL
     Route: 048
     Dates: start: 20040930, end: 20041201

REACTIONS (1)
  - SEPTIC SHOCK [None]
